FAERS Safety Report 4417552-8 (Version None)
Quarter: 2004Q3

REPORT INFORMATION
  Report Type: 
  Country: None (occurrence: None)
  Receive Date: 20040804
  Receipt Date: 20040723
  Transmission Date: 20050211
  Serious: Yes (Death)
  Sender: FDA-Public Use
  Company Number: 2004050136

PATIENT
  Age: 20 Month
  Sex: Male
  Weight: 10 kg

DRUGS (1)
  1. DEXTROMETHORPHAN (DEXTROMETHORPHAN) [Suspect]
     Indication: COUGH
     Dosage: 1 ML (3 MG) TWICE, ORAL
     Route: 048

REACTIONS (16)
  - BRAIN OEDEMA [None]
  - BRONCHOPNEUMONIA [None]
  - HILAR LYMPHADENOPATHY [None]
  - LYMPHADENOPATHY [None]
  - METABOLIC DISORDER [None]
  - OVERDOSE [None]
  - PERICARDIAL EFFUSION [None]
  - PLEURAL DISORDER [None]
  - PULMONARY CONGESTION [None]
  - PULMONARY HAEMORRHAGE [None]
  - RESPIRATORY FAILURE [None]
  - SIALOADENITIS [None]
  - SPLEEN DISORDER [None]
  - SPLENOMEGALY [None]
  - TRACHEAL DISORDER [None]
  - VIRAL INFECTION [None]
